FAERS Safety Report 9548413 (Version 1)
Quarter: 2013Q2

REPORT INFORMATION
  Report Type: Spontaneous
  Country: US (occurrence: None)
  Receive Date: 20130627
  Receipt Date: 20130627
  Transmission Date: 20140414
  Serious: Yes (Other)
  Sender: FDA-Public Use
  Company Number: 1000043111

PATIENT
  Age: 69 Year
  Sex: Female

DRUGS (5)
  1. LINZESS [Suspect]
     Indication: IRRITABLE BOWEL SYNDROME
     Route: 048
     Dates: start: 20130301
  2. COUMADIN (WARFARIN) (WARFARIN) [Concomitant]
  3. PREMARIN (ESTROGENS CONJUGATED) (ESTROGENS CONJUGATED) [Concomitant]
  4. PREMARIN (ESTROGENS CONJUGATED ) (ESTROGENS CONJUGATED) [Concomitant]
  5. BENTYL (DICYCLOVERINE HYDROCHLORIDE0 DICYCLOVERINE HYDROCHLORIDE) [Concomitant]

REACTIONS (1)
  - Frequent bowel movements [None]
